FAERS Safety Report 22208777 (Version 2)
Quarter: 2023Q2

REPORT INFORMATION
  Report Type: Spontaneous
  Country: US (occurrence: US)
  Receive Date: 20230413
  Receipt Date: 20230614
  Transmission Date: 20230722
  Serious: No
  Sender: FDA-Public Use
  Company Number: US-BRISTOL-MYERS SQUIBB COMPANY-2023-052752

PATIENT
  Age: 80 Year
  Sex: Male
  Weight: 85.8 kg

DRUGS (2)
  1. IDHIFA [Suspect]
     Active Substance: ENASIDENIB MESYLATE
     Indication: Acute myeloid leukaemia
  2. IDHIFA [Suspect]
     Active Substance: ENASIDENIB MESYLATE
     Dosage: FREQUENCY: DAILY
     Route: 048
     Dates: start: 20230315

REACTIONS (2)
  - Constipation [Unknown]
  - Product dose omission issue [Unknown]
